FAERS Safety Report 8192667-X (Version None)
Quarter: 2012Q1

REPORT INFORMATION
  Report Type: 
  Country: None (occurrence: None)
  Receive Date: 20120221
  Receipt Date: 20111109
  Transmission Date: 20120608
  Serious: No
  Sender: FDA-Public Use
  Company Number: 1000025344

PATIENT
  Age: 69 Year
  Sex: Male

DRUGS (6)
  1. XANAX [Concomitant]
  2. VIIBRYD [Suspect]
     Indication: DEPRESSION
     Dosage: 10 MG (10 MG, 1 IN 1D), ORAL; 20 MG (20 MG, 1 IN 1 D),ORAL
     Route: 048
     Dates: start: 20111001, end: 20111001
  3. VIIBRYD [Suspect]
     Indication: DEPRESSION
     Dosage: 10 MG (10 MG, 1 IN 1D), ORAL; 20 MG (20 MG, 1 IN 1 D),ORAL
     Route: 048
     Dates: start: 20111001, end: 20111001
  4. AMBIEN [Concomitant]
  5. VIIBRYD [Suspect]
     Indication: DEPRESSION
     Dosage: 40 MG (40 MG, 1 IN 1 D),ORAL; 20 MG (20 MG, 1 IN 1 D), ORAL
     Route: 048
     Dates: start: 20111001, end: 20111001
  6. VIIBRYD [Suspect]
     Indication: DEPRESSION
     Dosage: 40 MG (40 MG, 1 IN 1 D),ORAL; 20 MG (20 MG, 1 IN 1 D), ORAL
     Route: 048
     Dates: start: 20111001

REACTIONS (7)
  - DRY MOUTH [None]
  - DIZZINESS [None]
  - ASTHENIA [None]
  - HEADACHE [None]
  - DEPRESSION [None]
  - DRUG INEFFECTIVE [None]
  - DECREASED APPETITE [None]
